FAERS Safety Report 7406211-5 (Version None)
Quarter: 2011Q2

REPORT INFORMATION
  Report Type: 
  Country: None (occurrence: None)
  Receive Date: 20110411
  Receipt Date: 20110330
  Transmission Date: 20111010
  Serious: Yes (Hospitalization)
  Sender: FDA-Public Use
  Company Number: FR-SANOFI-AVENTIS-2011SA004083

PATIENT
  Age: 81 Year
  Sex: Male
  Weight: 73 kg

DRUGS (9)
  1. AUGMENTIN [Concomitant]
     Indication: BRONCHITIS
     Route: 065
     Dates: start: 20101210, end: 20101218
  2. DOXAZOSIN [Concomitant]
  3. MULTAQ [Suspect]
     Route: 048
     Dates: start: 20101124, end: 20110204
  4. PREVISCAN [Concomitant]
     Route: 048
     Dates: start: 20101124, end: 20110101
  5. FLAGYL [Concomitant]
     Indication: CLOSTRIDIUM DIFFICILE COLITIS
     Route: 048
     Dates: start: 20110101, end: 20110101
  6. LEVOTHYROX [Concomitant]
     Indication: HYPOTHYROIDISM
     Route: 048
  7. PRAVASTATIN [Concomitant]
  8. IRBESARTAN [Concomitant]
  9. CABERGOLINE [Concomitant]

REACTIONS (6)
  - SQUAMOUS CELL CARCINOMA [None]
  - INFLAMMATION [None]
  - LEUKOCYTOSIS [None]
  - CHOLESTASIS [None]
  - GENERAL PHYSICAL HEALTH DETERIORATION [None]
  - ABDOMINAL PAIN [None]
